FAERS Safety Report 19213621 (Version 5)
Quarter: 2022Q2

REPORT INFORMATION
  Report Type: Spontaneous
  Country: CA (occurrence: None)
  Receive Date: 20210505
  Receipt Date: 20220622
  Transmission Date: 20220721
  Serious: Yes (Life-Threatening, Hospitalization, Other)
  Sender: FDA-Public Use
  Company Number: 2021A365696

PATIENT
  Age: 52 Year
  Sex: Female

DRUGS (31)
  1. BUDESONIDE\FORMOTEROL [Interacting]
     Active Substance: BUDESONIDE\FORMOTEROL
     Indication: Asthma
     Dosage: UNKNOWN
     Route: 055
  2. BUDESONIDE\FORMOTEROL [Interacting]
     Active Substance: BUDESONIDE\FORMOTEROL
     Indication: Product used for unknown indication
     Dosage: UNKNOWN
     Route: 055
  3. BUDESONIDE\FORMOTEROL [Interacting]
     Active Substance: BUDESONIDE\FORMOTEROL
     Indication: Asthma
     Dosage: UNKNOWN
     Route: 055
  4. BUDESONIDE\FORMOTEROL [Interacting]
     Active Substance: BUDESONIDE\FORMOTEROL
     Indication: Product used for unknown indication
     Dosage: UNKNOWN
     Route: 055
  5. BUDESONIDE\FORMOTEROL [Interacting]
     Active Substance: BUDESONIDE\FORMOTEROL
     Indication: Asthma
     Dosage: UNKNOWN
     Route: 055
  6. BUDESONIDE\FORMOTEROL [Interacting]
     Active Substance: BUDESONIDE\FORMOTEROL
     Indication: Product used for unknown indication
     Dosage: UNKNOWN
     Route: 055
  7. DULOXETINE [Interacting]
     Active Substance: DULOXETINE
     Indication: Sciatica
     Route: 065
  8. DULOXETINE [Interacting]
     Active Substance: DULOXETINE
     Indication: Product used for unknown indication
     Route: 065
  9. DULOXETINE [Interacting]
     Active Substance: DULOXETINE
     Indication: Sciatica
     Route: 065
  10. DULOXETINE [Interacting]
     Active Substance: DULOXETINE
     Indication: Product used for unknown indication
     Route: 065
  11. DULOXETINE [Interacting]
     Active Substance: DULOXETINE
     Indication: Sciatica
     Route: 065
  12. DULOXETINE [Interacting]
     Active Substance: DULOXETINE
     Indication: Product used for unknown indication
     Route: 065
  13. DULOXETINE [Interacting]
     Active Substance: DULOXETINE
     Indication: Sciatica
     Route: 065
  14. DULOXETINE [Interacting]
     Active Substance: DULOXETINE
     Indication: Product used for unknown indication
     Route: 065
  15. XYLOMETAZOLINE [Interacting]
     Active Substance: XYLOMETAZOLINE
     Indication: Nasal congestion
     Route: 061
  16. XYLOMETAZOLINE [Interacting]
     Active Substance: XYLOMETAZOLINE
     Indication: Product used for unknown indication
     Route: 061
  17. XYLOMETAZOLINE [Interacting]
     Active Substance: XYLOMETAZOLINE
     Indication: Nasal congestion
     Route: 065
  18. XYLOMETAZOLINE [Interacting]
     Active Substance: XYLOMETAZOLINE
     Indication: Product used for unknown indication
     Route: 065
  19. XYLOMETAZOLINE [Interacting]
     Active Substance: XYLOMETAZOLINE
     Indication: Nasal congestion
     Route: 045
  20. XYLOMETAZOLINE [Interacting]
     Active Substance: XYLOMETAZOLINE
     Indication: Product used for unknown indication
     Route: 045
  21. XYLOMETAZOLINE [Interacting]
     Active Substance: XYLOMETAZOLINE
     Indication: Nasal congestion
     Route: 065
  22. XYLOMETAZOLINE [Interacting]
     Active Substance: XYLOMETAZOLINE
     Indication: Product used for unknown indication
     Route: 065
  23. XYLOMETAZOLINE [Interacting]
     Active Substance: XYLOMETAZOLINE
     Indication: Nasal congestion
     Route: 061
  24. XYLOMETAZOLINE [Interacting]
     Active Substance: XYLOMETAZOLINE
     Indication: Product used for unknown indication
     Route: 061
  25. XYLOMETAZOLINE [Interacting]
     Active Substance: XYLOMETAZOLINE
     Indication: Nasal congestion
     Route: 045
  26. XYLOMETAZOLINE [Interacting]
     Active Substance: XYLOMETAZOLINE
     Indication: Product used for unknown indication
     Route: 045
  27. ALBUTEROL [Interacting]
     Active Substance: ALBUTEROL
     Indication: Asthma
     Route: 065
  28. ALBUTEROL [Interacting]
     Active Substance: ALBUTEROL
     Indication: Product used for unknown indication
     Route: 065
  29. ALBUTEROL [Interacting]
     Active Substance: ALBUTEROL
     Indication: Asthma
     Route: 065
  30. ALBUTEROL [Interacting]
     Active Substance: ALBUTEROL
     Indication: Product used for unknown indication
     Route: 065
  31. ALBUTEROL SULFATE [Concomitant]
     Active Substance: ALBUTEROL SULFATE
     Indication: Asthma
     Route: 065

REACTIONS (15)
  - Rhinorrhoea [Unknown]
  - Allergy to animal [Recovered/Resolved]
  - Cerebral artery stenosis [Recovered/Resolved]
  - Nasal mucosal disorder [Recovered/Resolved]
  - Nasal septum deviation [Recovered/Resolved]
  - Nasal turbinate hypertrophy [Recovered/Resolved]
  - Rebound nasal congestion [Recovered/Resolved]
  - Reversible cerebral vasoconstriction syndrome [Recovered/Resolved]
  - Rhinorrhoea [Recovered/Resolved]
  - Subarachnoid haemorrhage [Recovered/Resolved]
  - Thunderclap headache [Recovered/Resolved]
  - Hypertension [Recovered/Resolved]
  - Product use in unapproved indication [Recovered/Resolved]
  - Drug interaction [Recovered/Resolved]
  - Headache [Recovered/Resolved]
